FAERS Safety Report 19249389 (Version 1)
Quarter: 2021Q2

REPORT INFORMATION
  Report Type: Spontaneous
  Country: BR (occurrence: BR)
  Receive Date: 20210513
  Receipt Date: 20210513
  Transmission Date: 20210717
  Serious: Yes (Death)
  Sender: FDA-Public Use
  Company Number: BR-JNJFOC-20210514091

PATIENT
  Age: 83 Year
  Sex: Female

DRUGS (1)
  1. XARELTO [Suspect]
     Active Substance: RIVAROXABAN
     Indication: CARDIAC DISORDER
     Dosage: 1 DF, BID
     Route: 048
     Dates: start: 2015, end: 2019

REACTIONS (3)
  - Off label use [Unknown]
  - Cardiac disorder [Fatal]
  - Dyspnoea [Fatal]

NARRATIVE: CASE EVENT DATE: 2019
